FAERS Safety Report 13335891 (Version 2)
Quarter: 2017Q2

REPORT INFORMATION
  Report Type: Spontaneous
  Country: JP (occurrence: JP)
  Receive Date: 20170314
  Receipt Date: 20170424
  Transmission Date: 20170830
  Serious: Yes (Hospitalization, Other)
  Sender: FDA-Public Use
  Company Number: JP-PFIZER INC-2017109416

PATIENT
  Age: 41 Year
  Sex: Male

DRUGS (23)
  1. MIGLITOL. [Suspect]
     Active Substance: MIGLITOL
     Dosage: 225 MG, DAILY
     Route: 048
     Dates: start: 2015
  2. CALONAL [Concomitant]
     Active Substance: ACETAMINOPHEN
     Dosage: UNK
  3. BAYASPIRIN [Concomitant]
     Active Substance: ASPIRIN
     Dosage: 100 MG, UNK
  4. CRESTOR [Concomitant]
     Active Substance: ROSUVASTATIN CALCIUM
     Dosage: UNK
  5. PIOGLITAZONE. [Concomitant]
     Active Substance: PIOGLITAZONE
     Dosage: UNK
  6. KREMEZIN [Concomitant]
     Active Substance: ACTIVATED CHARCOAL
     Dosage: UNK
  7. KEFRAL [Concomitant]
     Active Substance: CEFACLOR
     Dosage: UNK
  8. POVIDONE-IODINE. [Concomitant]
     Active Substance: POVIDONE-IODINE
  9. MIGLITOL. [Suspect]
     Active Substance: MIGLITOL
     Dosage: 100 MG, DAILY
     Route: 048
     Dates: start: 2015
  10. NEXIUM [Concomitant]
     Active Substance: ESOMEPRAZOLE MAGNESIUM
     Dosage: UNK
  11. TETRAMIDE [Concomitant]
     Active Substance: MIANSERIN
     Dosage: UNK
  12. MAGLAX [Concomitant]
     Active Substance: MAGNESIUM OXIDE
     Dosage: UNK
  13. PIOGLITAZONE HYDROCHLORIDE. [Concomitant]
     Active Substance: PIOGLITAZONE HYDROCHLORIDE
     Dosage: UNK
  14. SELENICA-R [Concomitant]
     Active Substance: VALPROATE SODIUM
     Dosage: UNK
  15. GASCON [Concomitant]
     Active Substance: DIMETHICONE
     Dosage: UNK
  16. ALENDRONATE SODIUM. [Concomitant]
     Active Substance: ALENDRONATE SODIUM
     Dosage: UNK
  17. TRAZENTA [Concomitant]
     Active Substance: LINAGLIPTIN
     Dosage: UNK
     Dates: start: 20150703
  18. LENDORMIN DAINIPPO [Concomitant]
     Active Substance: BROTIZOLAM
     Dosage: UNK
  19. ROHYPNOL [Concomitant]
     Active Substance: FLUNITRAZEPAM
     Dosage: UNK
  20. SENNOSIDE [Concomitant]
     Active Substance: SENNOSIDES
     Dosage: UNK
  21. DEPAKENE [Concomitant]
     Active Substance: VALPROIC ACID
     Dosage: UNK
  22. BAKTAR [Concomitant]
     Active Substance: SULFAMETHOXAZOLE\TRIMETHOPRIM
     Dosage: UNK
  23. FORXIGA [Concomitant]
     Active Substance: DAPAGLIFLOZIN
     Dosage: UNK

REACTIONS (5)
  - Dry skin [Recovered/Resolved]
  - Sarcoidosis [Recovering/Resolving]
  - C-reactive protein increased [Recovered/Resolved]
  - Hypercalcaemia [Recovered/Resolved]
  - Hepatic function abnormal [Recovered/Resolved]

NARRATIVE: CASE EVENT DATE: 20150715
